FAERS Safety Report 4874855-0 (Version None)
Quarter: 2006Q1

REPORT INFORMATION
  Report Type: 
  Country: None (occurrence: None)
  Receive Date: 20060109
  Receipt Date: 20051209
  Transmission Date: 20060701
  Serious: Yes (Death, Life-Threatening)
  Sender: FDA-Public Use
  Company Number: FR-AVENTIS-200514074FR

PATIENT
  Age: 71 Year
  Sex: Female

DRUGS (3)
  1. LASILIX [Suspect]
     Route: 048
     Dates: start: 20050812, end: 20050831
  2. MOPRAL [Suspect]
     Route: 042
  3. TRIFLUCAN [Suspect]

REACTIONS (8)
  - ANAEMIA [None]
  - ENDOCARDITIS STAPHYLOCOCCAL [None]
  - NEUTROPENIA [None]
  - PANCYTOPENIA [None]
  - POST PROCEDURAL COMPLICATION [None]
  - RESPIRATORY DISTRESS [None]
  - SEPTIC SHOCK [None]
  - THROMBOCYTOPENIA [None]
